FAERS Safety Report 5346025-3 (Version None)
Quarter: 2007Q2

REPORT INFORMATION
  Report Type: 
  Country: None (occurrence: None)
  Receive Date: 20070426
  Receipt Date: 20060918
  Transmission Date: 20071010
  Serious: Yes (Other)
  Sender: FDA-Public Use
  Company Number: US-JNJFOC-20060904609

PATIENT
  Age: 76 Year
  Sex: Female
  Weight: 56.6996 kg

DRUGS (3)
  1. RAZADYNE ER [Suspect]
     Indication: BLOOD PRESSURE
     Dosage: 16 MG, 1 IN 1 DAY, ORAL
     Route: 048
     Dates: start: 20060101
  2. RAZADYNE ER [Suspect]
     Indication: DEMENTIA ALZHEIMER'S TYPE
     Dosage: 16 MG, 1 IN 1 DAY, ORAL
     Route: 048
     Dates: start: 20060101
  3. TRI HYDROCHLOROTHIAZIDE (SER-AP-ES) [Concomitant]

REACTIONS (4)
  - AKATHISIA [None]
  - ANOREXIA [None]
  - DIZZINESS [None]
  - PSYCHOMOTOR HYPERACTIVITY [None]
